FAERS Safety Report 4355109-8 (Version None)
Quarter: 2004Q2

REPORT INFORMATION
  Report Type: 
  Country: None (occurrence: None)
  Receive Date: 20040504
  Receipt Date: 20040417
  Transmission Date: 20050107
  Serious: Yes (Death)
  Sender: FDA-Public Use
  Company Number: REL-RIR-116

PATIENT
  Age: 74 Year
  Sex: Male
  Weight: 60.782 kg

DRUGS (15)
  1. RYTHMOL [Suspect]
     Indication: ATRIAL FIBRILLATION
     Dates: start: 20010501
  2. MAVIK [Suspect]
     Indication: HYPERTENSION
     Dosage: 2.0 MG QD
     Dates: start: 19990816
  3. ASPIRIN [Concomitant]
  4. QUINAPRIL HCL [Concomitant]
  5. GLYCERYL TRINITRATE [Concomitant]
  6. DILTIAZEM [Concomitant]
  7. ALBUTEROL SULFATE [Concomitant]
  8. FUROSEMIDE [Concomitant]
  9. POTASSIUM CHLORIDE [Concomitant]
  10. PREDNISONE [Concomitant]
  11. AMOXICILLIN [Concomitant]
  12. CLOPIDOGREL BISULFATE [Concomitant]
  13. GABAPENTIN [Concomitant]
  14. VALPROATE SODIUM [Concomitant]
  15. HYDROCODONE [Concomitant]

REACTIONS (3)
  - ATRIAL FIBRILLATION [None]
  - BRADYCARDIA [None]
  - ELECTROMECHANICAL DISSOCIATION [None]
